FAERS Safety Report 7791468-1 (Version None)
Quarter: 2011Q3

REPORT INFORMATION
  Report Type: 
  Country: None (occurrence: None)
  Receive Date: 20110930
  Receipt Date: 20110930
  Transmission Date: 20111222
  Serious: Yes (Other)
  Sender: FDA-Public Use
  Company Number: None

PATIENT
  Age: 75 Year
  Sex: Female
  Weight: 68.0396 kg

DRUGS (2)
  1. PRO-DENTX CHLORHEXIDENE GLUCONATE ORAL RINSE USP ZILA DIV OF TOLMAR [Suspect]
     Indication: DENTAL CLEANING
     Dosage: SMALL AMOUNT NO WATER 1 TIME BEFORE BEDTIME
     Dates: start: 20110810
  2. PRO-DENTX CHLORHEXIDENE GLUCONATE ORAL RINSE USP ZILA DIV OF TOLMAR [Suspect]
     Indication: DENTAL CLEANING
     Dosage: SMALL AMOUNT NO WATER 1 TIME BEFORE BEDTIME
     Dates: start: 20110823

REACTIONS (5)
  - SCAB [None]
  - DYSGEUSIA [None]
  - ABDOMINAL PAIN UPPER [None]
  - SKIN DISCOLOURATION [None]
  - RASH ERYTHEMATOUS [None]
